FAERS Safety Report 13176108 (Version 1)
Quarter: 2017Q1

REPORT INFORMATION
  Report Type: Spontaneous
  Country: US (occurrence: US)
  Receive Date: 20170201
  Receipt Date: 20170201
  Transmission Date: 20170428
  Serious: No
  Sender: FDA-Public Use
  Company Number: US-PERRIGO-16US015423

PATIENT
  Age: 74 Year
  Sex: Female
  Weight: 63.49 kg

DRUGS (1)
  1. IBUPROFEN. [Suspect]
     Active Substance: IBUPROFEN
     Indication: MYALGIA
     Dosage: 200 OR 400 MG, QD
     Route: 048
     Dates: start: 201603, end: 20160408

REACTIONS (2)
  - Incorrect drug administration duration [Recovered/Resolved]
  - Blood urine present [Not Recovered/Not Resolved]

NARRATIVE: CASE EVENT DATE: 201603
